FAERS Safety Report 20177549 (Version 1)
Quarter: 2021Q4

REPORT INFORMATION
  Report Type: Spontaneous
  Country: CN (occurrence: CN)
  Receive Date: 20211213
  Receipt Date: 20211213
  Transmission Date: 20220303
  Serious: Yes (Disabling)
  Sender: FDA-Public Use
  Company Number: CN-PFIZER INC-202101723347

PATIENT
  Age: 66 Year
  Sex: Male
  Weight: 55.5 kg

DRUGS (6)
  1. CELECOXIB [Suspect]
     Active Substance: CELECOXIB
     Indication: Herpes zoster
     Dosage: 0.2 G, 2X/DAY
     Route: 048
     Dates: start: 20211103, end: 20211115
  2. CELECOXIB [Suspect]
     Active Substance: CELECOXIB
     Indication: Antiinflammatory therapy
  3. CELECOXIB [Suspect]
     Active Substance: CELECOXIB
     Indication: Analgesic therapy
  4. GANCICLOVIR [Suspect]
     Active Substance: GANCICLOVIR
     Indication: Herpes zoster
     Dosage: 0.25 G, 3X/DAY
     Route: 041
     Dates: start: 20211103, end: 20211112
  5. METHYLCOBALAMIN [Concomitant]
     Active Substance: METHYLCOBALAMIN
     Indication: Herpes zoster
     Dosage: 0.5 MG, 3X/DAY
     Route: 048
     Dates: start: 20211103, end: 20211115
  6. DALTEPARIN SODIUM [Concomitant]
     Active Substance: DALTEPARIN SODIUM
     Indication: Herpes zoster
     Dosage: 5000 IU, 1X/DAY
     Route: 058
     Dates: start: 20211102, end: 20211115

REACTIONS (2)
  - White blood cell count decreased [Unknown]
  - Neutrophil count decreased [Unknown]

NARRATIVE: CASE EVENT DATE: 20211114
